FAERS Safety Report 15395913 (Version 1)
Quarter: 2018Q3

REPORT INFORMATION
  Report Type: Spontaneous
  Country: US (occurrence: US)
  Receive Date: 20180912
  Receipt Date: 20180912
  Transmission Date: 20181010
  Serious: Yes (Disabling)
  Sender: FDA-Public Use
  Company Number: None

PATIENT
  Age: 35 Year
  Sex: Female
  Weight: 56.7 kg

DRUGS (1)
  1. MIRENA [Suspect]
     Active Substance: LEVONORGESTREL
     Dates: start: 20040101, end: 20180425

REACTIONS (8)
  - Uterine perforation [None]
  - Pain in extremity [None]
  - Complication of device removal [None]
  - Anxiety [None]
  - Pelvic pain [None]
  - Device dislocation [None]
  - Irritable bowel syndrome [None]
  - Back pain [None]

NARRATIVE: CASE EVENT DATE: 20170701
